FAERS Safety Report 9491689 (Version 5)
Quarter: 2014Q1

REPORT INFORMATION
  Report Type: Spontaneous
  Country: JP (occurrence: JP)
  Receive Date: 20130830
  Receipt Date: 20140217
  Transmission Date: 20141002
  Serious: Yes (Death)
  Sender: FDA-Public Use
  Company Number: JP-PFIZER INC-2013236658

PATIENT
  Age: 77 Year
  Sex: Male
  Weight: 50 kg

DRUGS (14)
  1. ZOSYN [Suspect]
     Indication: PNEUMONIA ASPIRATION
     Dosage: 4.5 G, 3X/DAY
     Route: 041
     Dates: start: 20130716, end: 20130722
  2. BAYASPIRIN [Concomitant]
     Dosage: 100 MG, DAILY
     Route: 048
  3. FUROSEMIDE [Concomitant]
     Dosage: 20 MG, DAILY
     Route: 048
  4. LANSOPRAZOLE [Concomitant]
     Dosage: 15 MG, DAILY
     Route: 048
  5. JANUVIA [Concomitant]
     Dosage: 50 MG, DAILY
     Route: 048
  6. TEGRETOL [Concomitant]
     Dosage: 100 MG, DAILY
     Route: 048
  7. LANDSEN [Concomitant]
     Dosage: 2 MG, DAILY
  8. MUCODYNE [Concomitant]
     Dosage: 1500 MG, DAILY
     Route: 048
  9. BIOFERMIN [Concomitant]
     Dosage: 3 DF, DAILY
     Route: 048
  10. CALNATE [Concomitant]
     Dosage: 5 MG, DAILY
  11. AMIGRAND [Concomitant]
     Dosage: 1500 ML/DAY
     Dates: start: 20130712, end: 20130723
  12. SUPELON [Concomitant]
     Dosage: 250 MG, 1X/DAY
     Dates: start: 20130712, end: 20130712
  13. ROZECLART [Concomitant]
     Indication: PNEUMONIA ASPIRATION
     Dosage: 2 G/DAY
     Dates: start: 20130712, end: 20130716
  14. ROZECLART [Concomitant]
     Dosage: 1 G, DAILY
     Dates: start: 20130727, end: 20130729

REACTIONS (1)
  - Renal failure acute [Fatal]
